FAERS Safety Report 19218650 (Version 1)
Quarter: 2021Q2

REPORT INFORMATION
  Report Type: Spontaneous
  Country: US (occurrence: US)
  Receive Date: 20210505
  Receipt Date: 20210505
  Transmission Date: 20210717
  Serious: Yes (Life-Threatening, Hospitalization, Other)
  Sender: FDA-Public Use
  Company Number: US-APOTEX-2021AP010548

PATIENT
  Age: 29 Year
  Sex: Male

DRUGS (5)
  1. GEMCITABINE. [Suspect]
     Active Substance: GEMCITABINE
     Indication: CHOLANGIOCARCINOMA
     Dosage: 1000 MILLIGRAM/SQ. METER 8 OF EACH 21?DAY CYCLE FOR A TOTAL OF 9 CYCLES (CUMULATIVE DOSES OF 18,000
     Route: 042
  2. GEMCITABINE. [Suspect]
     Active Substance: GEMCITABINE
     Dosage: 500 MILLIGRAM/SQ. METER (OVER 25 DAYS)
     Route: 042
  3. GEMCITABINE. [Suspect]
     Active Substance: GEMCITABINE
     Dosage: 700 MILLIGRAM/SQ. METER (OVER 25 DAYS)
     Route: 042
  4. CISPLATIN. [Suspect]
     Active Substance: CISPLATIN
     Indication: CHOLANGIOCARCINOMA
     Dosage: 25 MILLIGRAM/SQ. METER ON DAY 1 8 OF EACH 21?DAY CYCLE FOR A TOTAL OF 9 CYCLES (CUMULATIVE DOSES OF
     Route: 042
  5. GEMCITABINE. [Suspect]
     Active Substance: GEMCITABINE
     Indication: CHOLANGIOCARCINOMA
     Dosage: 800 MILLIGRAM/SQ. METER (OVER 25 DAYS)
     Route: 042

REACTIONS (2)
  - Thrombotic microangiopathy [Recovered/Resolved]
  - Myelosuppression [Recovering/Resolving]
